FAERS Safety Report 6535723-1 (Version None)
Quarter: 2010Q1

REPORT INFORMATION
  Report Type: 
  Country: None (occurrence: None)
  Receive Date: 20100113
  Receipt Date: 20091225
  Transmission Date: 20100710
  Serious: Yes (Death, Other)
  Sender: FDA-Public Use
  Company Number: US-BAYER-201010831GPV

PATIENT
  Age: 29 Year
  Sex: Male

DRUGS (4)
  1. ACETAMINOPHEN/ DIPHENHYDRAMINE [Suspect]
     Indication: COMPLETED SUICIDE
  2. SERTRALINE HCL [Suspect]
     Indication: COMPLETED SUICIDE
  3. BUTALBITAL [Concomitant]
     Indication: DRUG USE FOR UNKNOWN INDICATION
  4. CAFFEINE [Concomitant]
     Indication: DRUG USE FOR UNKNOWN INDICATION

REACTIONS (7)
  - ASPIRATION [None]
  - CONFUSIONAL STATE [None]
  - DRUG TOXICITY [None]
  - HYPERTENSION [None]
  - MYDRIASIS [None]
  - MYOCARDIAL INFARCTION [None]
  - VOMITING [None]
